FAERS Safety Report 11107251 (Version 1)
Quarter: 2015Q2

REPORT INFORMATION
  Report Type: Spontaneous
  Country: US (occurrence: US)
  Receive Date: 20150512
  Receipt Date: 20150512
  Transmission Date: 20150821
  Serious: Yes (Hospitalization, Other)
  Sender: FDA-Public Use
  Company Number: US-009507513-1203USA00769

PATIENT
  Sex: Female
  Weight: 56.24 kg

DRUGS (5)
  1. FOSAMAX [Suspect]
     Active Substance: ALENDRONATE SODIUM
     Dosage: 70 MG, UNK
     Route: 048
     Dates: start: 20050211, end: 20060608
  2. FOSAMAX PLUS D [Suspect]
     Active Substance: ALENDRONATE SODIUM\CHOLECALCIFEROL
     Dosage: 70 MG, UNK
     Route: 048
     Dates: start: 20060706, end: 20061122
  3. BONIVA [Suspect]
     Active Substance: IBANDRONATE SODIUM
     Dosage: UNK, UNK
     Dates: start: 2005, end: 2008
  4. IBANDRONATE SODIUM. [Suspect]
     Active Substance: IBANDRONATE SODIUM
     Dates: start: 2005, end: 2008
  5. FOSAMAX [Suspect]
     Active Substance: ALENDRONATE SODIUM
     Dosage: UNK
     Route: 048
     Dates: start: 2005, end: 2008

REACTIONS (20)
  - Hypertension [Unknown]
  - Intramedullary rod insertion [Unknown]
  - Osteopenia [Unknown]
  - Back pain [Unknown]
  - Thyroid disorder [Unknown]
  - N-telopeptide [Unknown]
  - Femur fracture [Recovering/Resolving]
  - Breast cyst excision [Unknown]
  - Intramedullary rod insertion [Unknown]
  - Thyroid neoplasm [Unknown]
  - Deep vein thrombosis [Unknown]
  - Meniscus injury [Unknown]
  - Patellofemoral pain syndrome [Unknown]
  - Spondylolisthesis [Unknown]
  - Vitamin D deficiency [Unknown]
  - Blood alkaline phosphatase increased [Unknown]
  - Osteomalacia [Unknown]
  - Fibromyalgia [Unknown]
  - Hypercholesterolaemia [Unknown]
  - Kyphosis [Unknown]

NARRATIVE: CASE EVENT DATE: 20051109
